FAERS Safety Report 15497726 (Version 1)
Quarter: 2018Q4

REPORT INFORMATION
  Report Type: Spontaneous
  Country: NL (occurrence: NL)
  Receive Date: 20181015
  Receipt Date: 20181015
  Transmission Date: 20190205
  Serious: Yes (Hospitalization, Disabling, Other)
  Sender: FDA-Public Use
  Company Number: NL-BAUSCH-BL-2018-027610

PATIENT
  Sex: Female

DRUGS (18)
  1. PREDNISONE. [Suspect]
     Active Substance: PREDNISONE
     Indication: ARTHRITIS
     Route: 065
     Dates: start: 2014
  2. RITUXIMAB. [Suspect]
     Active Substance: RITUXIMAB
     Indication: NON-HODGKIN^S LYMPHOMA
     Route: 065
     Dates: start: 2014
  3. CERTOLIZUMAB [Suspect]
     Active Substance: CERTOLIZUMAB
     Indication: TENOSYNOVITIS
     Route: 065
     Dates: end: 2012
  4. DOXORUBICIN [Suspect]
     Active Substance: DOXORUBICIN
     Indication: NON-HODGKIN^S LYMPHOMA
     Route: 065
     Dates: start: 2014
  5. CLARITHROMYCIN. [Concomitant]
     Active Substance: CLARITHROMYCIN
     Indication: INFECTION
     Dates: start: 2012
  6. AMOXICILLIN, CLAVULANIC ACID [Concomitant]
     Active Substance: AMOXICILLIN\CLAVULANIC ACID
     Indication: ARTHRITIS
     Dates: start: 2014
  7. PREDNISONE. [Suspect]
     Active Substance: PREDNISONE
     Indication: TENOSYNOVITIS
     Route: 065
     Dates: start: 2015
  8. CYCLOPHOSPHAMIDE. [Suspect]
     Active Substance: CYCLOPHOSPHAMIDE
     Indication: NON-HODGKIN^S LYMPHOMA
     Route: 065
     Dates: start: 2014
  9. TOCILIZUMAB. [Suspect]
     Active Substance: TOCILIZUMAB
     Indication: TENOSYNOVITIS
     Route: 065
     Dates: start: 2012, end: 2016
  10. METHOTREXATE. [Suspect]
     Active Substance: METHOTREXATE
     Route: 065
     Dates: start: 2015
  11. KENACORT [Suspect]
     Active Substance: TRIAMCINOLONE
     Indication: TENOSYNOVITIS
     Route: 065
     Dates: start: 2008
  12. ABATACEPT [Suspect]
     Active Substance: ABATACEPT
     Indication: RHEUMATOID ARTHRITIS
     Route: 065
     Dates: start: 2012, end: 2014
  13. ADALIMUMAB [Suspect]
     Active Substance: ADALIMUMAB
     Indication: TENOSYNOVITIS
     Route: 065
     Dates: end: 2012
  14. CLINDAMYCIN. [Concomitant]
     Active Substance: CLINDAMYCIN
     Indication: ARTHRITIS
     Dates: start: 2014
  15. ETANERCEPT [Suspect]
     Active Substance: ETANERCEPT
     Indication: TENOSYNOVITIS
     Route: 065
     Dates: start: 2009
  16. PREDNISOLONE. [Suspect]
     Active Substance: PREDNISOLONE
     Indication: NON-HODGKIN^S LYMPHOMA
     Route: 065
     Dates: start: 2014
  17. METHOTREXATE. [Suspect]
     Active Substance: METHOTREXATE
     Indication: TENOSYNOVITIS
     Route: 065
     Dates: start: 2008
  18. VINCRISTINE [Suspect]
     Active Substance: VINCRISTINE
     Indication: NON-HODGKIN^S LYMPHOMA
     Route: 065
     Dates: start: 2014

REACTIONS (2)
  - Condition aggravated [Recovered/Resolved]
  - Infective tenosynovitis [Recovered/Resolved]
